FAERS Safety Report 18101555 (Version 5)
Quarter: 2021Q1

REPORT INFORMATION
  Report Type: Report from Study
  Country: BR (occurrence: BR)
  Receive Date: 20200801
  Receipt Date: 20210211
  Transmission Date: 20210419
  Serious: Yes (Hospitalization, Other)
  Sender: FDA-Public Use
  Company Number: NVSC2020BR214192

PATIENT
  Age: 57 Year
  Sex: Female
  Weight: 73 kg

DRUGS (3)
  1. COSENTYX [Suspect]
     Active Substance: SECUKINUMAB
     Indication: PSORIATIC ARTHROPATHY
     Dosage: 1 DF, UNKNOWN
     Route: 065
     Dates: start: 20200210
  2. COSENTYX [Suspect]
     Active Substance: SECUKINUMAB
     Dosage: 1 DF, UNKNOWN
     Route: 065
     Dates: start: 20210110
  3. COSENTYX [Suspect]
     Active Substance: SECUKINUMAB
     Dosage: 1 DF, UNKNOWN
     Route: 065
     Dates: start: 20200607

REACTIONS (16)
  - Thrombosis [Recovered/Resolved]
  - Nail growth abnormal [Recovering/Resolving]
  - COVID-19 [Recovered/Resolved]
  - Thrombosis [Recovering/Resolving]
  - Renal failure [Unknown]
  - Blood triglycerides increased [Unknown]
  - Cough [Recovered/Resolved]
  - Throat irritation [Recovered/Resolved]
  - Alopecia [Recovered/Resolved]
  - Pulmonary oedema [Recovered/Resolved]
  - Wound complication [Recovering/Resolving]
  - Cardiac disorder [Recovered/Resolved]
  - Pulmonary oedema [Recovered/Resolved]
  - Limb injury [Not Recovered/Not Resolved]
  - Dyspnoea [Unknown]
  - Fatigue [Recovering/Resolving]

NARRATIVE: CASE EVENT DATE: 2020
